FAERS Safety Report 4280821-9 (Version None)
Quarter: 2004Q1

REPORT INFORMATION
  Report Type: 
  Country: None (occurrence: None)
  Receive Date: 20040128
  Receipt Date: 20040128
  Transmission Date: 20041129
  Serious: Yes (Hospitalization)
  Sender: FDA-Public Use
  Company Number: None

PATIENT
  Sex: Male
  Weight: 65.4 kg

DRUGS (1)
  1. TRETINOIN [Suspect]
     Indication: ACUTE PROMYELOCYTIC LEUKAEMIA
     Dosage: 22.85 MG BID ORAL
     Route: 048
     Dates: start: 20031201, end: 20031207

REACTIONS (1)
  - HYPERCALCAEMIA [None]
